FAERS Safety Report 12375814 (Version 1)
Quarter: 2016Q2

REPORT INFORMATION
  Report Type: Spontaneous
  Country: US (occurrence: US)
  Receive Date: 20160517
  Receipt Date: 20160517
  Transmission Date: 20160815
  Serious: No
  Sender: FDA-Public Use
  Company Number: US-GLAXOSMITHKLINE-US2016048884

PATIENT
  Sex: Male

DRUGS (2)
  1. SUMATRIPTAN SUCCINATE SOLUTION FOR INJECTION [Suspect]
     Active Substance: SUMATRIPTAN SUCCINATE
     Indication: MIGRAINE
     Route: 058
  2. IMITREX [Suspect]
     Active Substance: SUMATRIPTAN SUCCINATE
     Indication: MIGRAINE
     Dosage: 6 MG, PRN
     Route: 058

REACTIONS (5)
  - Chest discomfort [Recovered/Resolved]
  - Off label use [Unknown]
  - Intentional underdose [Unknown]
  - Treatment noncompliance [Unknown]
  - Inability to afford medication [Unknown]
